FAERS Safety Report 5268045-X (Version None)
Quarter: 2007Q1

REPORT INFORMATION
  Report Type: 
  Country: None (occurrence: None)
  Receive Date: 20070316
  Receipt Date: 20070316
  Transmission Date: 20070707
  Serious: Yes (Life-Threatening, Hospitalization)
  Sender: FDA-Public Use
  Company Number: None

PATIENT
  Sex: Male
  Weight: 88.7 kg

DRUGS (5)
  1. MYCOPHENOLATE MOFETIL [Suspect]
     Indication: KIDNEY TRANSPLANT REJECTION
     Dosage: 750MG BLD PO
     Route: 048
     Dates: start: 20031124
  2. TACROLIMUS 1MG [Suspect]
     Indication: PROPHYLAXIS
     Dosage: 2MG BLD PO
     Route: 048
     Dates: start: 20031124
  3. PREDNISONE [Concomitant]
  4. FERROUS SULFATE [Concomitant]
  5. AZITHROMYCIN [Concomitant]

REACTIONS (3)
  - GASTROINTESTINAL HAEMORRHAGE [None]
  - PNEUMONIA [None]
  - URINARY TRACT INFECTION [None]
